FAERS Safety Report 11018938 (Version 2)
Quarter: 2015Q2

REPORT INFORMATION
  Report Type: Spontaneous
  Country: US (occurrence: US)
  Receive Date: 20150412
  Receipt Date: 20150525
  Transmission Date: 20150821
  Serious: No
  Sender: FDA-Public Use
  Company Number: US-JNJFOC-20131203787

PATIENT
  Sex: Male

DRUGS (1)
  1. LEVAQUIN [Suspect]
     Active Substance: LEVOFLOXACIN
     Indication: PRODUCT USED FOR UNKNOWN INDICATION
     Route: 065
     Dates: start: 20131112

REACTIONS (15)
  - Hallucination, auditory [Unknown]
  - Depression [Unknown]
  - Tremor [Unknown]
  - Pain in extremity [Unknown]
  - Oedema peripheral [Unknown]
  - Confusional state [Unknown]
  - Hallucination, visual [Unknown]
  - Insomnia [Unknown]
  - Nervousness [Unknown]
  - Hypersensitivity [Unknown]
  - Tendon disorder [Unknown]
  - Gait disturbance [Unknown]
  - Nightmare [Unknown]
  - Anxiety [Unknown]
  - Restlessness [Unknown]

NARRATIVE: CASE EVENT DATE: 201311
